FAERS Safety Report 17187063 (Version 1)
Quarter: 2019Q4

REPORT INFORMATION
  Report Type: Spontaneous
  Country: US (occurrence: US)
  Receive Date: 20191220
  Receipt Date: 20191220
  Transmission Date: 20200122
  Serious: No
  Sender: FDA-Public Use
  Company Number: US-TEVA-2019-US-1153991

PATIENT
  Sex: Female

DRUGS (1)
  1. BUPRENORPHINE TRANSDERMAL SYSTEM [Suspect]
     Active Substance: BUPRENORPHINE
     Dosage: STRENGTH: 20 MCG/HR
     Route: 062

REACTIONS (6)
  - Application site erythema [Unknown]
  - Pruritus [Unknown]
  - Application site pain [Unknown]
  - Device leakage [Unknown]
  - Hypersomnia [Unknown]
  - Confusional state [Unknown]

NARRATIVE: CASE EVENT DATE: 20191211
